FAERS Safety Report 14454622 (Version 1)
Quarter: 2018Q1

REPORT INFORMATION
  Report Type: Spontaneous
  Country: US (occurrence: US)
  Receive Date: 20180129
  Receipt Date: 20180129
  Transmission Date: 20180509
  Serious: No
  Sender: FDA-Public Use
  Company Number: US-009507513-1801USA002846

PATIENT
  Sex: Female

DRUGS (14)
  1. ENOXAPARIN SODIUM. [Concomitant]
     Active Substance: ENOXAPARIN SODIUM
  2. POLYETHYLENE GLYCOL [Concomitant]
     Active Substance: POLYETHYLENE GLYCOLS
  3. CELECOXIB. [Concomitant]
     Active Substance: CELECOXIB
  4. SENNA [Concomitant]
     Active Substance: SENNA LEAF\SENNOSIDES\SENNOSIDES A AND B
  5. IBUPROFEN. [Concomitant]
     Active Substance: IBUPROFEN
  6. OXYCODONE [Concomitant]
     Active Substance: OXYCODONE
  7. ZOLPIDEM [Concomitant]
     Active Substance: ZOLPIDEM\ZOLPIDEM TARTRATE
  8. ESZOPICLONE. [Concomitant]
     Active Substance: ESZOPICLONE
  9. WARFARIN [Concomitant]
     Active Substance: WARFARIN
  10. DIPHENHYDRAMINE. [Concomitant]
     Active Substance: DIPHENHYDRAMINE
  11. CICLOPIROX. [Concomitant]
     Active Substance: CICLOPIROX
  12. KETOTIFEN FUMARATE. [Concomitant]
     Active Substance: KETOTIFEN FUMARATE
  13. ZEPATIER [Suspect]
     Active Substance: ELBASVIR\GRAZOPREVIR
     Dosage: 1 DF, QD
     Route: 048
     Dates: start: 20171205
  14. XARELTO [Concomitant]
     Active Substance: RIVAROXABAN

REACTIONS (4)
  - Nausea [Unknown]
  - Drug dose omission [Unknown]
  - Product supply issue [Unknown]
  - Rash [Unknown]
